FAERS Safety Report 21048510 (Version 11)
Quarter: 2023Q2

REPORT INFORMATION
  Report Type: Spontaneous
  Country: US (occurrence: US)
  Receive Date: 20220706
  Receipt Date: 20230504
  Transmission Date: 20230722
  Serious: Yes (Other)
  Sender: FDA-Public Use
  Company Number: US-PFIZER INC-202101793046

PATIENT
  Age: 28 Year
  Sex: Female
  Weight: 72.57 kg

DRUGS (4)
  1. XELJANZ [Suspect]
     Active Substance: TOFACITINIB CITRATE
     Indication: Trisomy 21
     Dosage: 5 MG, 2X/DAY
     Route: 048
  2. XELJANZ [Suspect]
     Active Substance: TOFACITINIB CITRATE
     Dosage: 10 MG, 2X/DAY (10MG PO BID (60 TABLETS))
     Route: 048
  3. XELJANZ [Suspect]
     Active Substance: TOFACITINIB CITRATE
     Dosage: 10 MG, 3X/DAY (TWICE IN THE EVENING AND ONCE IN THE MORNING)
     Route: 048
  4. XELJANZ [Suspect]
     Active Substance: TOFACITINIB CITRATE
     Dosage: 10 MG XELJANZ 10 MG PO (ORALLY) BID (TWICE A DAY) (60 TABLETS) (UC ONLY)

REACTIONS (8)
  - Seizure [Unknown]
  - Epilepsy [Unknown]
  - Intentional product misuse [Unknown]
  - Off label use [Unknown]
  - Drug effective for unapproved indication [Unknown]
  - Condition aggravated [Unknown]
  - Illness [Unknown]
  - COVID-19 [Unknown]
